FAERS Safety Report 21702752 (Version 1)
Quarter: 2022Q4

REPORT INFORMATION
  Report Type: Other
  Country: US (occurrence: None)
  Receive Date: 20221209
  Receipt Date: 20221209
  Transmission Date: 20230113
  Serious: Yes (Other)
  Sender: FDA-Public Use
  Company Number: US-ROCHE-2832420

PATIENT
  Age: 41 Year
  Sex: Male

DRUGS (2)
  1. ERIVEDGE [Suspect]
     Active Substance: VISMODEGIB
     Indication: Basal cell carcinoma
     Dosage: TAKE 1 CAPSULE BY MOUTH EVERY OTHER DAY - TAKE CAPSULE WHOLE, DO NOT BREAK
     Route: 048
  2. HYDROCODONE [Concomitant]
     Active Substance: HYDROCODONE

REACTIONS (5)
  - Back pain [Unknown]
  - Spinal compression fracture [Unknown]
  - Bone disorder [Unknown]
  - Arthritis [Unknown]
  - Pain [Unknown]
